FAERS Safety Report 5625823-2 (Version None)
Quarter: 2008Q1

REPORT INFORMATION
  Report Type: 
  Country: None (occurrence: None)
  Receive Date: 20080211
  Receipt Date: 20080129
  Transmission Date: 20080703
  Serious: Yes (Hospitalization)
  Sender: FDA-Public Use
  Company Number: 010906

PATIENT
  Age: 35 Year
  Sex: Male

DRUGS (1)
  1. ANTABUSE [Suspect]
     Indication: ALCOHOLISM
     Dosage: IMPLANT

REACTIONS (8)
  - ACUTE HEPATIC FAILURE [None]
  - BLOOD ALCOHOL INCREASED [None]
  - ENCEPHALOPATHY [None]
  - HAEMODIALYSIS [None]
  - HEPATOMEGALY [None]
  - HYPOTENSION [None]
  - RENAL FAILURE [None]
  - THROMBOCYTOPENIA [None]
